FAERS Safety Report 22035808 (Version 9)
Quarter: 2025Q2

REPORT INFORMATION
  Report Type: Report from Study
  Country: CN (occurrence: CN)
  Receive Date: 20230224
  Receipt Date: 20250611
  Transmission Date: 20250716
  Serious: Yes (Other)
  Sender: GILEAD
  Company Number: CN-FOSUNKITE-FOSUNKITE-20230155

PATIENT
  Age: 65 Year
  Sex: Female
  Weight: 55.5 kg

DRUGS (11)
  1. AXICABTAGENE CILOLEUCEL [Suspect]
     Active Substance: AXICABTAGENE CILOLEUCEL
     Indication: Non-Hodgkin^s lymphoma
     Route: 065
     Dates: start: 20220613, end: 20220613
  2. CYCLOPHOSPHAMIDE [Suspect]
     Active Substance: CYCLOPHOSPHAMIDE
     Indication: Lymphodepletion
     Route: 041
     Dates: start: 20220608, end: 20220610
  3. FLUDARABINE [Suspect]
     Active Substance: FLUDARABINE PHOSPHATE
     Indication: Lymphodepletion
     Route: 041
     Dates: start: 20220608, end: 20220610
  4. TOCILIZUMAB [Concomitant]
     Active Substance: TOCILIZUMAB
     Route: 042
     Dates: start: 20220613
  5. TOCILIZUMAB [Concomitant]
     Active Substance: TOCILIZUMAB
     Route: 041
     Dates: start: 20220620, end: 20220620
  6. TOCILIZUMAB [Concomitant]
     Active Substance: TOCILIZUMAB
     Dates: start: 20220622, end: 20220622
  7. CYTARABINE [Concomitant]
     Active Substance: CYTARABINE
     Dates: start: 20220319
  8. IBRUTINIB [Concomitant]
     Active Substance: IBRUTINIB
     Dates: start: 20220427, end: 2022
  9. IBRUTINIB [Concomitant]
     Active Substance: IBRUTINIB
     Dates: start: 20220525, end: 2022
  10. IBRUTINIB [Concomitant]
     Active Substance: IBRUTINIB
     Dates: start: 20220602
  11. IBRUTINIB [Concomitant]
     Active Substance: IBRUTINIB
     Dates: start: 20220603

REACTIONS (9)
  - Hypokalaemia [Recovered/Resolved]
  - Cytokine release syndrome [Recovered/Resolved]
  - Blood bilirubin increased [Recovered/Resolved]
  - Blood fibrinogen decreased [Recovered/Resolved]
  - Nervous system disorder [Recovered/Resolved]
  - Hyponatraemia [Recovered/Resolved]
  - White blood cell count decreased [Recovered/Resolved]
  - Neutrophil count decreased [Recovered/Resolved]
  - Anaemia [Recovered/Resolved]

NARRATIVE: CASE EVENT DATE: 20220615
